FAERS Safety Report 9436613 (Version 3)
Quarter: 2013Q4

REPORT INFORMATION
  Report Type: Spontaneous
  Country: US (occurrence: US)
  Receive Date: 20130802
  Receipt Date: 20131024
  Transmission Date: 20140711
  Serious: Yes (Other)
  Sender: FDA-Public Use
  Company Number: US-JNJFOC-20130714191

PATIENT
  Age: 14 Month
  Sex: Female
  Weight: 7.71 kg

DRUGS (1)
  1. DESITIN MAXIMUM STRENGTH ORIGINAL PASTE [Suspect]
     Indication: DERMATITIS DIAPER
     Dosage: 7 TIMES
     Route: 061
     Dates: start: 20130720, end: 20130721

REACTIONS (3)
  - Chemical injury [Recovering/Resolving]
  - Application site burn [Recovering/Resolving]
  - Product label issue [Unknown]
